FAERS Safety Report 11926728 (Version 2)
Quarter: 2016Q1

REPORT INFORMATION
  Report Type: Spontaneous
  Country: US (occurrence: US)
  Receive Date: 20160119
  Receipt Date: 20160229
  Transmission Date: 20160526
  Serious: Yes (Hospitalization)
  Sender: FDA-Public Use
  Company Number: US-PFIZER INC-2016018918

PATIENT
  Age: 57 Year
  Sex: Female

DRUGS (4)
  1. GEODON [Interacting]
     Active Substance: ZIPRASIDONE HYDROCHLORIDE\ZIPRASIDONE MESYLATE
     Dosage: TWO 60MG TABLETS AT NIGHT
  2. SYMBICORT [Suspect]
     Active Substance: BUDESONIDE\FORMOTEROL FUMARATE DIHYDRATE
     Indication: ASTHMA
     Dosage: 2 DF(160MCG/4.5MCG), 2X/DAY
  3. ALBUTEROL. [Suspect]
     Active Substance: ALBUTEROL
     Indication: ASTHMA
     Dosage: 80MG 2 PUFFS, DAILY
     Dates: start: 2005
  4. GEODON [Interacting]
     Active Substance: ZIPRASIDONE HYDROCHLORIDE\ZIPRASIDONE MESYLATE
     Indication: FINE MOTOR SKILL DYSFUNCTION
     Dosage: TWO 80MG TABLETS AT BEDTIME
     Dates: start: 1985

REACTIONS (3)
  - Drug prescribing error [Unknown]
  - Drug interaction [Unknown]
  - Asthma [Unknown]

NARRATIVE: CASE EVENT DATE: 201503
